FAERS Safety Report 8328471-9 (Version None)
Quarter: 2012Q2

REPORT INFORMATION
  Report Type: 
  Country: None (occurrence: None)
  Receive Date: 20120502
  Receipt Date: 20120502
  Transmission Date: 20120825
  Serious: No
  Sender: FDA-Public Use
  Company Number: None

PATIENT
  Age: 74 Year
  Sex: Female
  Weight: 52.163 kg

DRUGS (1)
  1. CRESTOR [Suspect]
     Indication: BLOOD CHOLESTEROL INCREASED
     Dosage: |DOSAGETEXT: 10MG||STRENGTH: 10MG||FREQ: DAILY|
     Dates: start: 20111115, end: 20120430

REACTIONS (2)
  - MACULAR DEGENERATION [None]
  - DRUG INEFFECTIVE [None]
